FAERS Safety Report 9011628 (Version 1)
Quarter: 2012Q4

REPORT INFORMATION
  Report Type: 
  Country: JP (occurrence: JP)
  Receive Date: 20121212
  Receipt Date: 20121212
  Transmission Date: 20130627
  Serious: Yes (Other)
  Sender: FDA-Public Use
  Company Number: JP-CUBIST PHARMACEUTICAL, INC.-2012CBST000019

PATIENT

DRUGS (3)
  1. CUBICIN [Suspect]
     Indication: STAPHYLOCOCCAL INFECTION
     Dosage: UNK UNK, UNK
     Route: 041
     Dates: start: 20121109, end: 20121109
  2. LOXONIN [Concomitant]
     Indication: PROCEDURAL PAIN
     Dosage: UNK UNK, UNK
     Route: 048
     Dates: start: 20121108, end: 20121111
  3. MUCOSTA [Concomitant]
     Indication: GASTRITIS PROPHYLAXIS
     Dosage: UNK, UNK
     Route: 048
     Dates: start: 20121108, end: 20121111

REACTIONS (2)
  - Generalised oedema [Recovered/Resolved]
  - Drug eruption [Recovered/Resolved]
